FAERS Safety Report 19667151 (Version 1)
Quarter: 2021Q3

REPORT INFORMATION
  Report Type: Spontaneous
  Country: US (occurrence: US)
  Receive Date: 20210806
  Receipt Date: 20210806
  Transmission Date: 20211014
  Serious: Yes (Other)
  Sender: FDA-Public Use
  Company Number: US-SHILPA MEDICARE LIMITED-SML-US-2021-00941

PATIENT
  Age: 71 Year
  Sex: Female

DRUGS (2)
  1. CAPECITABINE, UNKNOWN [Suspect]
     Active Substance: CAPECITABINE
     Indication: INVASIVE DUCTAL BREAST CARCINOMA
     Dosage: 1250 MG/M2 OF BODY SURFACE AREA TWICE DAILY FOR 14 DAYS ON, 7 DAYS OFF
     Route: 065
  2. CAPECITABINE, UNKNOWN [Suspect]
     Active Substance: CAPECITABINE
     Indication: TRIPLE NEGATIVE BREAST CANCER

REACTIONS (2)
  - Dermatitis [Recovering/Resolving]
  - Recall phenomenon [Recovering/Resolving]
